FAERS Safety Report 6757256-X (Version None)
Quarter: 2010Q2

REPORT INFORMATION
  Report Type: 
  Country: None (occurrence: None)
  Receive Date: 20100607
  Receipt Date: 20100521
  Transmission Date: 20101027
  Serious: No
  Sender: FDA-Public Use
  Company Number: US-BIOGENIDEC-2010BI015728

PATIENT
  Sex: Male

DRUGS (2)
  1. TYSABRI [Suspect]
     Indication: MULTIPLE SCLEROSIS
     Route: 042
     Dates: start: 20071204, end: 20091201
  2. TYSABRI [Suspect]
     Route: 042
     Dates: start: 20100101

REACTIONS (4)
  - CORNEAL DISORDER [None]
  - CORNEAL SCAR [None]
  - OPTIC NEURITIS [None]
  - VISUAL IMPAIRMENT [None]
